FAERS Safety Report 9404655 (Version 1)
Quarter: 2013Q3

REPORT INFORMATION
  Report Type: Spontaneous
  Country: DE (occurrence: DE)
  Receive Date: 20130717
  Receipt Date: 20130717
  Transmission Date: 20140515
  Serious: Yes (Congenital Anomaly, Other)
  Sender: FDA-Public Use
  Company Number: PHHY2013DE074984

PATIENT
  Sex: 0

DRUGS (7)
  1. ALLOPURINOL [Suspect]
     Route: 064
  2. AMLODIPINE [Suspect]
     Route: 064
  3. VALSARTAN [Suspect]
     Route: 064
  4. METOPROLOL [Suspect]
  5. HYDROCHLOROTHIAZIDE [Suspect]
     Route: 064
  6. METHYLDOPA [Suspect]
     Route: 064
  7. DESLORATADINE [Suspect]
     Route: 064

REACTIONS (5)
  - Premature baby [Unknown]
  - Patent ductus arteriosus [Unknown]
  - Eyelid ptosis [Unknown]
  - Umbilical hernia [Unknown]
  - Foetal exposure during pregnancy [Unknown]
